FAERS Safety Report 17077507 (Version 2)
Quarter: 2019Q4

REPORT INFORMATION
  Report Type: Spontaneous
  Country: AU (occurrence: AU)
  Receive Date: 20191126
  Receipt Date: 20191216
  Transmission Date: 20200122
  Serious: Yes (Other)
  Sender: FDA-Public Use
  Company Number: AU-AMGEN-AUSSP2019194922

PATIENT
  Age: 75 Year
  Sex: Male
  Weight: 48 kg

DRUGS (21)
  1. AMITRIPTYLINE [Concomitant]
     Active Substance: AMITRIPTYLINE
     Dosage: 25 MILLIGRAM, QD
  2. CIRCADIN [Concomitant]
     Active Substance: MELATONIN
     Dosage: 2 MILLIGRAM,I TABLET ROUGHLY 1-2 HOURS BEFORE BED FOR 12 WEEKS
  3. CORTIC [HYDROCORTISONE ACETATE] [Concomitant]
     Dosage: 1 PERCENT, AS NECESSARY
  4. DUODART [Concomitant]
     Active Substance: DUTASTERIDE\TAMSULOSIN
     Dosage: 500MCG; 400MCG, QD
  5. LEVOTHYROXINE [LEVOTHYROXINE SODIUM] [Concomitant]
     Active Substance: LEVOTHYROXINE SODIUM
     Dosage: 0.075 MILLIGRAM, QD
  6. PROLIA [Suspect]
     Active Substance: DENOSUMAB
     Indication: PRODUCT USED FOR UNKNOWN INDICATION
     Dosage: 60 MILLIGRAM PER MILLILITRE, Q6MO
     Route: 065
  7. ASPIRIN [ACETYLSALICYLIC ACID] [Concomitant]
     Active Substance: ASPIRIN
     Dosage: 100 MILLIGRAM, QD
  8. CEPHALEX [CEFALEXIN] [Concomitant]
     Dosage: 500 MILLIGRAM, TID
  9. SEEBRI [Concomitant]
     Active Substance: GLYCOPYRROLATE
     Dosage: 50 MICROGRAM, QD
  10. DULCOLAX [SODIUM PICOSULFATE] [Concomitant]
     Dosage: 7.5 MILLIGRAM PER MILLILITRE,10 DROPS (5 MG) AT NIGHT. QD
  11. ARANESP [Suspect]
     Active Substance: DARBEPOETIN ALFA
     Dosage: 20 MICROGRAM PER MILLIGRAM
     Route: 058
  12. ATORVASTATIN [Concomitant]
     Active Substance: ATORVASTATIN
     Dosage: 40 MILLIGRAM, QD
  13. PREGABALIN. [Concomitant]
     Active Substance: PREGABALIN
     Dosage: 75 MILLIGRAM
  14. NEXIUM [Concomitant]
     Active Substance: ESOMEPRAZOLE MAGNESIUM
     Dosage: 20 MILLIGRAM, QD
  15. VALIUM [Concomitant]
     Active Substance: DIAZEPAM
     Dosage: 5 MILLIGRAM, QD
  16. XALATAN [Concomitant]
     Active Substance: LATANOPROST
     Dosage: 50 MICROGRAM PER MILLIGRAM, QD
  17. PARACETAMOL [Concomitant]
     Active Substance: ACETAMINOPHEN
     Dosage: 665 MILLIGRAM, BID
  18. PREGABALIN. [Concomitant]
     Active Substance: PREGABALIN
     Dosage: 25 MILLIGRAM, BID
  19. ARANESP [Suspect]
     Active Substance: DARBEPOETIN ALFA
     Indication: MYELODYSPLASTIC SYNDROME
     Dosage: 20MCG/0.5ML
     Route: 058
     Dates: start: 2009
  20. ACTILAX [LACTULOSE] [Concomitant]
     Dosage: 3.34G/5ML,THREE OR FOUR TIMES PER DAY
  21. COLOXYL [DOCUSATE SODIUM] [Concomitant]
     Dosage: 50MG; I 1.27MG,BID

REACTIONS (3)
  - Haemoglobin decreased [Unknown]
  - Anaemia [Not Recovered/Not Resolved]
  - Device issue [Unknown]

NARRATIVE: CASE EVENT DATE: 2019
